FAERS Safety Report 5108338-X (Version None)
Quarter: 2006Q3

REPORT INFORMATION
  Report Type: 
  Country: None (occurrence: None)
  Receive Date: 20060915
  Receipt Date: 20060912
  Transmission Date: 20061208
  Serious: Yes (Death, Hospitalization)
  Sender: FDA-Public Use
  Company Number: 163-21880-06090410

PATIENT
  Age: 74 Year
  Sex: Male

DRUGS (1)
  1. REVLIMID [Suspect]
     Indication: MYELODYSPLASTIC SYNDROME
     Dosage: 10 MG, PO DAILY, ORAL
     Route: 048
     Dates: start: 20060626, end: 20060903

REACTIONS (4)
  - ASTHENIA [None]
  - CONFUSIONAL STATE [None]
  - RENAL FAILURE ACUTE [None]
  - THROMBOCYTOPENIA [None]
